FAERS Safety Report 8434264 (Version 3)
Quarter: 2013Q3

REPORT INFORMATION
  Report Type: Report from Study
  Country: JP (occurrence: JP)
  Receive Date: 20120301
  Receipt Date: 20130920
  Transmission Date: 20140515
  Serious: Yes (Other)
  Sender: FDA-Public Use
  Company Number: JP-AMGEN-JPNCT2012013047

PATIENT
  Age: 77 Year
  Sex: Male
  Weight: 57 kg

DRUGS (5)
  1. ROMIPLOSTIM - KHK [Suspect]
     Indication: IMMUNE THROMBOCYTOPENIC PURPURA
     Dosage: 1 MUG/KG, QD
     Route: 058
     Dates: start: 20110816
  2. ROMIPLOSTIM - KHK [Suspect]
     Dosage: 2 MUG/KG, QD
     Route: 058
     Dates: start: 20110823, end: 20110823
  3. FEBURIC [Concomitant]
     Indication: HYPERURICAEMIA
     Dosage: UNK
     Route: 048
  4. GASMOTIN [Concomitant]
     Dosage: UNK
     Route: 048
  5. REVOLADE [Concomitant]
     Indication: IMMUNE THROMBOCYTOPENIC PURPURA
     Dosage: UNK
     Route: 048
     Dates: start: 20110325, end: 20110810

REACTIONS (1)
  - Myelodysplastic syndrome [Recovering/Resolving]
